FAERS Safety Report 26183435 (Version 1)
Quarter: 2025Q4

REPORT INFORMATION
  Report Type: Spontaneous
  Country: US (occurrence: US)
  Receive Date: 20251221
  Receipt Date: 20251221
  Transmission Date: 20260118
  Serious: No
  Sender: SANOFI AVENTIS
  Company Number: US-SA-2025SA377916

PATIENT
  Sex: Female
  Weight: 66.667 kg

DRUGS (24)
  1. DUPIXENT [Suspect]
     Active Substance: DUPILUMAB
     Indication: Pemphigoid
     Dosage: 300 MG, QOW
     Route: 058
  2. METAMUCIL [Concomitant]
     Active Substance: PLANTAGO SEED
  3. PLAVIX [Concomitant]
     Active Substance: CLOPIDOGREL BISULFATE
  4. DOXYCYCLINE HYCLATE [Concomitant]
     Active Substance: DOXYCYCLINE HYCLATE
  5. HYDROXYZINE HYDROCHLORIDE [Concomitant]
     Active Substance: HYDROXYZINE HYDROCHLORIDE
  6. DIAZEPAM [Concomitant]
     Active Substance: DIAZEPAM
  7. IBUPROFEN [Concomitant]
     Active Substance: IBUPROFEN
  8. TYLENOL [Concomitant]
     Active Substance: ACETAMINOPHEN
  9. CALCIUM [Concomitant]
     Active Substance: CALCIUM
  10. CLOBETASOL [Concomitant]
     Active Substance: CLOBETASOL
  11. POLYSPORIN [Concomitant]
     Active Substance: BACITRACIN ZINC\POLYMYXIN B SULFATE
  12. SYMBICORT [Concomitant]
     Active Substance: BUDESONIDE\FORMOTEROL FUMARATE DIHYDRATE
  13. VITAMINS [Concomitant]
     Active Substance: VITAMINS
  14. PREGABALIN [Concomitant]
     Active Substance: PREGABALIN
  15. VITAMIN D [Concomitant]
     Active Substance: VITAMIN D NOS
  16. OMEGA-3 ACIDS [Concomitant]
     Active Substance: OMEGA-3 FATTY ACIDS
  17. KEPPRA [Concomitant]
     Active Substance: LEVETIRACETAM
  18. ASPIRIN [Concomitant]
     Active Substance: ASPIRIN
  19. COLACE [Concomitant]
     Active Substance: DOCUSATE SODIUM
  20. COENZYME Q10 [Concomitant]
     Active Substance: DIETARY SUPPLEMENT\UBIDECARENONE
  21. COREG [Concomitant]
     Active Substance: CARVEDILOL
  22. BACLOFEN [Concomitant]
     Active Substance: BACLOFEN
  23. SEROQUEL [Concomitant]
     Active Substance: QUETIAPINE FUMARATE
  24. CALCIUM\CHOLECALCIFEROL [Concomitant]
     Active Substance: CALCIUM\CHOLECALCIFEROL

REACTIONS (1)
  - Injection site erythema [Unknown]
